FAERS Safety Report 11193117 (Version 1)
Quarter: 2015Q2

REPORT INFORMATION
  Report Type: Spontaneous
  Country: US (occurrence: None)
  Receive Date: 20150615
  Receipt Date: 20150615
  Transmission Date: 20150821
  Serious: No
  Sender: FDA-Public Use
  Company Number: None

PATIENT
  Age: 66 Year
  Sex: Female

DRUGS (1)
  1. HUMIRA [Suspect]
     Active Substance: ADALIMUMAB
     Dosage: ROUTE: SUBCUTANEOUS 057  STRENGTH: 40MG  DOSE FORM: INJECTABLE
     Route: 058

REACTIONS (2)
  - Pleural effusion [None]
  - Knee arthroplasty [None]

NARRATIVE: CASE EVENT DATE: 20150611
